FAERS Safety Report 4927090-1 (Version None)
Quarter: 2006Q1

REPORT INFORMATION
  Report Type: 
  Country: None (occurrence: None)
  Receive Date: 20060228
  Receipt Date: 20051020
  Transmission Date: 20060701
  Serious: No
  Sender: FDA-Public Use
  Company Number: US-GLAXOSMITHKLINE-A0578997A

PATIENT
  Age: 33 Year
  Sex: Male

DRUGS (5)
  1. LAMICTAL [Suspect]
     Indication: BIPOLAR DISORDER
     Dosage: 200MG PER DAY
     Route: 048
  2. VIAGRA [Suspect]
     Dosage: 100MG AS REQUIRED
  3. ZYPREXA [Concomitant]
  4. ADDERALL 10 [Concomitant]
  5. VIAGRA [Concomitant]

REACTIONS (1)
  - RASH [None]
